FAERS Safety Report 5034237-8 (Version None)
Quarter: 2006Q2

REPORT INFORMATION
  Report Type: 
  Country: None (occurrence: None)
  Receive Date: 20060621
  Receipt Date: 20060602
  Transmission Date: 20061013
  Serious: Yes (Hospitalization, Disabling)
  Sender: FDA-Public Use
  Company Number: 383710

PATIENT
  Age: 30 Year
  Sex: Male

DRUGS (1)
  1. ACCUTANE [Suspect]
     Indication: ACNE CYSTIC
     Dosage: ORAL
     Route: 048
     Dates: start: 20020402, end: 20020615

REACTIONS (45)
  - ANXIETY [None]
  - ARTHRALGIA [None]
  - BACTERIA STOOL IDENTIFIED [None]
  - BLOOD CHOLESTEROL INCREASED [None]
  - BLOOD TRIGLYCERIDES INCREASED [None]
  - BRONCHITIS [None]
  - CHOLECYSTITIS [None]
  - CLOSTRIDIAL INFECTION [None]
  - COLITIS ULCERATIVE [None]
  - CONDITION AGGRAVATED [None]
  - COUGH [None]
  - DEAFNESS UNILATERAL [None]
  - DEFORMITY [None]
  - DUODENITIS [None]
  - DYSPEPSIA [None]
  - EAR PAIN [None]
  - EFFUSION [None]
  - EMOTIONAL DISTRESS [None]
  - EPISTAXIS [None]
  - FAECALITH [None]
  - HEADACHE [None]
  - HERNIA [None]
  - HIATUS HERNIA [None]
  - ILEUS [None]
  - ILL-DEFINED DISORDER [None]
  - INFLAMMATORY BOWEL DISEASE [None]
  - INFLUENZA [None]
  - INJURY [None]
  - INSOMNIA [None]
  - INTESTINAL HAEMORRHAGE [None]
  - NECK PAIN [None]
  - OESOPHAGITIS [None]
  - OTITIS MEDIA [None]
  - PAIN [None]
  - PHARYNGOLARYNGEAL PAIN [None]
  - POST PROCEDURAL HAEMORRHAGE [None]
  - PURULENT DISCHARGE [None]
  - RECTAL HAEMORRHAGE [None]
  - RED BLOOD CELL COUNT DECREASED [None]
  - SEROSITIS [None]
  - SINUSITIS [None]
  - UMBILICAL HERNIA [None]
  - UPPER RESPIRATORY TRACT INFECTION [None]
  - WEIGHT DECREASED [None]
  - WHEEZING [None]
